FAERS Safety Report 5810918-0 (Version None)
Quarter: 2008Q3

REPORT INFORMATION
  Report Type: 
  Country: None (occurrence: None)
  Receive Date: 20080716
  Receipt Date: 20080704
  Transmission Date: 20090109
  Serious: Yes (Disabling)
  Sender: FDA-Public Use
  Company Number: PHHY2008GB13341

PATIENT
  Age: 76 Year
  Sex: Male
  Weight: 88 kg

DRUGS (6)
  1. ZOLEDRONIC ACID [Suspect]
     Indication: PROSTATE CANCER
     Dosage: 4 MG
     Route: 042
     Dates: start: 20080514, end: 20080514
  2. CASODEX [Concomitant]
  3. ALENDRONIC ACID [Concomitant]
  4. DICLOFENAC SODIUM [Concomitant]
  5. PREDNISOLONE [Concomitant]
  6. TRIPTORELIN [Concomitant]

REACTIONS (1)
  - DEAFNESS TRANSITORY [None]
